FAERS Safety Report 7477136-4 (Version None)
Quarter: 2011Q2

REPORT INFORMATION
  Report Type: 
  Country: None (occurrence: None)
  Receive Date: 20110512
  Receipt Date: 20110131
  Transmission Date: 20111010
  Serious: No
  Sender: FDA-Public Use
  Company Number: US-NOVEN-11US001697

PATIENT
  Age: 9 Year
  Sex: Male

DRUGS (2)
  1. DAYTRANA [Suspect]
     Indication: ATTENTION DEFICIT/HYPERACTIVITY DISORDER
     Dosage: 15 MG, UNKNOWN
     Route: 062
     Dates: start: 20080101
  2. INTUNIV [Concomitant]
     Indication: ATTENTION DEFICIT/HYPERACTIVITY DISORDER

REACTIONS (6)
  - DRUG PRESCRIBING ERROR [None]
  - ATTENTION DEFICIT/HYPERACTIVITY DISORDER [None]
  - MUSCULOSKELETAL PAIN [None]
  - DIZZINESS [None]
  - SKIN HYPERTROPHY [None]
  - DRUG ADMINISTERED AT INAPPROPRIATE SITE [None]
